FAERS Safety Report 9323374 (Version 2)
Quarter: 2013Q2

REPORT INFORMATION
  Report Type: Spontaneous
  Country: US (occurrence: US)
  Receive Date: 20130603
  Receipt Date: 20130624
  Transmission Date: 20140414
  Serious: No
  Sender: FDA-Public Use
  Company Number: US-009507513-1305USA014901

PATIENT
  Age: 64 Year
  Sex: Female
  Weight: 59.41 kg

DRUGS (9)
  1. VICTRELIS [Suspect]
     Dosage: TAKEN 4 CAPSULES (800 MG THREE TIMES A DAY (EVERY 7-9 HOURS)
     Route: 048
  2. REBETOL [Suspect]
     Dosage: 200 MG, UNK
     Route: 048
  3. PEGASYS [Suspect]
     Route: 058
  4. ATENOLOL [Concomitant]
     Dosage: 100 MG, UNK
     Route: 048
  5. NITROFUR MAC [Concomitant]
     Dosage: 100 MG, UNK
     Route: 048
  6. PROCRIT [Concomitant]
     Dosage: 10000/ML
     Route: 058
  7. ALLOPURINOL [Concomitant]
     Dosage: 100 MG, UNK
     Route: 048
  8. BUSPIRONE HYDROCHLORIDE [Concomitant]
     Dosage: 5 MG, UNK
     Route: 048
  9. CIPROFLOXACIN [Concomitant]

REACTIONS (8)
  - Transfusion [Unknown]
  - Ventricular extrasystoles [Unknown]
  - Blood potassium decreased [Unknown]
  - Nausea [Unknown]
  - Urinary tract infection [Unknown]
  - Dizziness [Unknown]
  - Fatigue [Unknown]
  - Lethargy [Unknown]
